FAERS Safety Report 25354457 (Version 1)
Quarter: 2025Q2

REPORT INFORMATION
  Report Type: Spontaneous
  Country: GB (occurrence: GB)
  Receive Date: 20250523
  Receipt Date: 20250523
  Transmission Date: 20250716
  Serious: Yes (Other)
  Sender: ELI LILLY AND COMPANY
  Company Number: None

PATIENT
  Age: 52 Year
  Sex: Male
  Weight: 136 kg

DRUGS (1)
  1. MOUNJARO [Suspect]
     Active Substance: TIRZEPATIDE
     Indication: Type 2 diabetes mellitus
     Route: 065

REACTIONS (10)
  - Paraesthesia [Unknown]
  - Dysarthria [Not Recovered/Not Resolved]
  - Balance disorder [Unknown]
  - Chills [Unknown]
  - Cerebrovascular accident [Unknown]
  - Feeding disorder [Unknown]
  - Crying [Unknown]
  - Nausea [Unknown]
  - Constipation [Unknown]
  - Flatulence [Unknown]

NARRATIVE: CASE EVENT DATE: 20250503
